FAERS Safety Report 5650065-4 (Version None)
Quarter: 2008Q1

REPORT INFORMATION
  Report Type: 
  Country: None (occurrence: None)
  Receive Date: 20080303
  Receipt Date: 20080221
  Transmission Date: 20080703
  Serious: Yes (Hospitalization, Other)
  Sender: FDA-Public Use
  Company Number: 2007SP022355

PATIENT
  Age: 42 Year
  Sex: Female

DRUGS (8)
  1. RIBAVIRIN [Suspect]
     Indication: HEPATITIS C
     Dosage: 3 DF;BID;PO; 2 DF;BID;PO
     Route: 048
     Dates: start: 20070715, end: 20071215
  2. RIBAVIRIN [Suspect]
     Indication: HEPATITIS C
     Dosage: 3 DF;BID;PO; 2 DF;BID;PO
     Route: 048
     Dates: start: 20080117
  3. PEGASYS [Suspect]
     Indication: HEPATITIS C
     Dosage: 180 MCG;QW;SC;
     Route: 058
     Dates: start: 20070715, end: 20071215
  4. PEGASYS [Suspect]
     Indication: HEPATITIS C
     Dosage: 180 MCG;QW;SC;
     Route: 058
     Dates: start: 20080117
  5. AMBIEN [Concomitant]
  6. ZOLOFT [Concomitant]
  7. FLEXERIL [Concomitant]
  8. VOLTAREN [Concomitant]

REACTIONS (10)
  - ABDOMINAL PAIN UPPER [None]
  - ALOPECIA [None]
  - ANAEMIA [None]
  - BLOOD COUNT ABNORMAL [None]
  - DEHYDRATION [None]
  - HALLUCINATION, AUDITORY [None]
  - HALLUCINATION, VISUAL [None]
  - OROPHARYNGEAL BLISTERING [None]
  - PANCREATITIS [None]
  - UNEVALUABLE EVENT [None]
